FAERS Safety Report 7146640 (Version 4)
Quarter: 2014Q4

REPORT INFORMATION
  Report Type: Spontaneous
  Country: US (occurrence: US)
  Receive Date: 20091012
  Receipt Date: 20141111
  Transmission Date: 20150529
  Serious: Yes (Hospitalization)
  Sender: FDA-Public Use
  Company Number: US-BAYER-200934743NA

PATIENT
  Age: 30 Year
  Sex: Female
  Weight: 56.69 kg

DRUGS (2)
  1. MIRENA [Suspect]
     Active Substance: LEVONORGESTREL
     Indication: CONTRACEPTION
     Dosage: 20 MCG/24HR, CONT
     Route: 015
     Dates: start: 20081008, end: 20091021
  2. MIRENA [Suspect]
     Active Substance: LEVONORGESTREL
     Indication: CONTRACEPTION
     Dosage: 20 MCG/24HR, CONT
     Route: 015
     Dates: start: 20091021, end: 201208

REACTIONS (7)
  - Emotional distress [None]
  - Uterine perforation [None]
  - Injury [None]
  - Anxiety [None]
  - Medical device complication [None]
  - Pain [None]
  - Depression [None]

NARRATIVE: CASE EVENT DATE: 200910
